FAERS Safety Report 11401677 (Version 1)
Quarter: 2015Q3

REPORT INFORMATION
  Report Type: Spontaneous
  Country: US (occurrence: US)
  Receive Date: 20150821
  Receipt Date: 20150821
  Transmission Date: 20151125
  Serious: No
  Sender: FDA-Public Use
  Company Number: US-AMGEN-USASP2015085355

PATIENT
  Age: 62 Year
  Sex: Female

DRUGS (21)
  1. FOLIC ACID. [Concomitant]
     Active Substance: FOLIC ACID
     Dosage: 1 MG TWICE DAILY
  2. NAPROXIN                           /00256201/ [Concomitant]
     Active Substance: NAPROXEN
     Dosage: 500 MG TWICE A DAY
  3. ENBREL [Suspect]
     Active Substance: ETANERCEPT
     Indication: RHEUMATOID ARTHRITIS
     Dosage: ONCE WEEKLY 50 MG
     Route: 065
     Dates: start: 201311, end: 20140814
  4. IRON [Concomitant]
     Active Substance: IRON
     Dosage: 130 MG DAILY
  5. HYDROXYCHLOROQUINE [Concomitant]
     Active Substance: HYDROXYCHLOROQUINE
     Dosage: 200MG DAILY
  6. ZYRTEC [Concomitant]
     Active Substance: CETIRIZINE HYDROCHLORIDE
     Dosage: 10 MG DAILY
  7. GABAPENTIN. [Concomitant]
     Active Substance: GABAPENTIN
     Dosage: 600 MG TWICE A DAY
  8. BIOTIN [Concomitant]
     Active Substance: BIOTIN
     Dosage: 10000 MCG ONCE DAILY
  9. VITAMIN D                          /00107901/ [Concomitant]
     Active Substance: ERGOCALCIFEROL
     Dosage: 2000 IU DAILY
  10. PREMARIN [Concomitant]
     Active Substance: ESTROGENS, CONJUGATED
     Dosage: 0.3 MG DAILY
  11. ATENOLOL. [Concomitant]
     Active Substance: ATENOLOL
     Dosage: 25 MG TWICE A DAY
  12. NEXIUM [Concomitant]
     Active Substance: ESOMEPRAZOLE MAGNESIUM
     Dosage: 40 MG DAILY
  13. LISINOPRIL. [Concomitant]
     Active Substance: LISINOPRIL
     Dosage: 2.5 MG DAILY
  14. METHOTREXATE [Concomitant]
     Active Substance: METHOTREXATE
     Dosage: 2.5 MG 6 TABLETS ONCE WEEKLY THURSDAY
  15. ASA [Concomitant]
     Active Substance: ASPIRIN
     Dosage: 81 MG ONCE DAILY
  16. HUMALOG [Concomitant]
     Active Substance: INSULIN LISPRO
     Dosage: PER CARB COUNT SLIDING SCALE
  17. LANTUS [Concomitant]
     Active Substance: INSULIN GLARGINE
     Dosage: AT BEDTIME SLIDING SCALE
  18. LIPITOR [Concomitant]
     Active Substance: ATORVASTATIN CALCIUM
     Dosage: 20 MG ONCE DAILY
  19. RESTASIS [Concomitant]
     Active Substance: CYCLOSPORINE
     Dosage: EYE DROPS TWICE A DAY
  20. VITAMIN B12 [Concomitant]
     Active Substance: CYANOCOBALAMIN
     Dosage: UNK
  21. GLUMETZA [Concomitant]
     Active Substance: METFORMIN HYDROCHLORIDE
     Dosage: 600 MG TWICE DAILY

REACTIONS (3)
  - Contusion [Unknown]
  - Erythema [Unknown]
  - Peripheral swelling [Unknown]
